FAERS Safety Report 9131770 (Version 1)
Quarter: 2013Q1

REPORT INFORMATION
  Report Type: Report from Study
  Country: DE (occurrence: DE)
  Receive Date: 20130301
  Receipt Date: 20130301
  Transmission Date: 20140127
  Serious: Yes (Hospitalization)
  Sender: FDA-Public Use
  Company Number: DE-ABBOTT-13P-062-1055091-00

PATIENT
  Age: 88 Year
  Sex: Male
  Weight: 55 kg

DRUGS (3)
  1. ZEMPLAR [Suspect]
     Indication: HYPERPARATHYROIDISM SECONDARY
     Dosage: 3 X 2 ?G PER WEEK
     Route: 048
     Dates: start: 20120525
  2. OSVAREN [Concomitant]
     Indication: PRODUCT USED FOR UNKNOWN INDICATION
     Dosage: 435/235 MG
     Route: 048
     Dates: start: 20120113
  3. APROVEL [Concomitant]
     Indication: PRODUCT USED FOR UNKNOWN INDICATION
     Dosage: 150 MG
     Dates: start: 20111219

REACTIONS (2)
  - Fall [Recovered/Resolved]
  - Contusion [Recovered/Resolved]
